FAERS Safety Report 16973092 (Version 5)
Quarter: 2020Q2

REPORT INFORMATION
  Report Type: Spontaneous
  Country: PT (occurrence: PT)
  Receive Date: 20191030
  Receipt Date: 20200429
  Transmission Date: 20200713
  Serious: Yes (Disabling)
  Sender: FDA-Public Use
  Company Number: PT-009507513-1910PRT013449

PATIENT
  Age: 85 Year
  Sex: Female

DRUGS (6)
  1. HYGROTON [Concomitant]
     Active Substance: CHLORTHALIDONE
     Indication: PRODUCT USED FOR UNKNOWN INDICATION
     Dosage: 25 MG (TAKE HALF A PILL)
     Route: 048
  2. EZETIMIBE. [Suspect]
     Active Substance: EZETIMIBE
     Indication: HYPERCHOLESTEROLAEMIA
  3. XALATAN [Concomitant]
     Active Substance: LATANOPROST
     Indication: GLAUCOMA
     Dosage: UNK
     Route: 047
  4. FENERGAN [Concomitant]
     Indication: URTICARIA
     Dosage: UNK
     Route: 061
  5. EZETIMIBE. [Suspect]
     Active Substance: EZETIMIBE
     Indication: HYPERCHOLESTEROLAEMIA
     Dosage: 10 MG, QD (SHE WAS PRESCRIBED 10MG/1XDAY AT NIGHT, BUT THE PATIENT WAS ONLY TAKING 2X WEEK FOR FEAR
     Route: 048
     Dates: end: 20191008
  6. CILESTODERME [Concomitant]
     Indication: ERYTHEMA
     Dosage: UNK
     Route: 065

REACTIONS (6)
  - Myalgia [Not Recovered/Not Resolved]
  - Rash macular [Not Recovered/Not Resolved]
  - Malaise [Not Recovered/Not Resolved]
  - Pruritus [Not Recovered/Not Resolved]
  - Joint swelling [Not Recovered/Not Resolved]
  - Erythema [Not Recovered/Not Resolved]
